FAERS Safety Report 17489447 (Version 1)
Quarter: 2020Q1

REPORT INFORMATION
  Report Type: Spontaneous
  Country: US (occurrence: US)
  Receive Date: 20200303
  Receipt Date: 20200303
  Transmission Date: 20200409
  Serious: No
  Sender: FDA-Public Use
  Company Number: US-JNJFOC-20200242495

PATIENT
  Sex: Male

DRUGS (1)
  1. INVEGA SUSTENNA [Suspect]
     Active Substance: PALIPERIDONE PALMITATE
     Indication: PRODUCT USED FOR UNKNOWN INDICATION
     Dosage: THE PATIENT BEGAN DRUG TWO YEARS AGO AND HIS LAST DOSE WAS ON 19/JAN/2020
     Route: 030
     Dates: end: 202002

REACTIONS (3)
  - Adverse drug reaction [Unknown]
  - Alopecia [Unknown]
  - Hypoaesthesia [Unknown]
